FAERS Safety Report 6405688-1 (Version None)
Quarter: 2009Q4

REPORT INFORMATION
  Report Type: 
  Country: None (occurrence: None)
  Receive Date: 20091014
  Receipt Date: 20091008
  Transmission Date: 20100525
  Serious: Yes (Death, Hospitalization, Other)
  Sender: FDA-Public Use
  Company Number: 230884J09USA

PATIENT
  Age: 71 Year
  Sex: Male
  Weight: 58 kg

DRUGS (1)
  1. REBIF [Suspect]
     Indication: MULTIPLE SCLEROSIS
     Dosage: 44 MCG, 3 IN 1 WEEKS, SUBCUTANEOUS
     Route: 058
     Dates: start: 20030501, end: 20090401

REACTIONS (14)
  - ACTIVITIES OF DAILY LIVING IMPAIRED [None]
  - ACUTE MYOCARDIAL INFARCTION [None]
  - APPENDICITIS [None]
  - ARTERIOSCLEROSIS [None]
  - ATRIOVENTRICULAR BLOCK [None]
  - COGNITIVE DISORDER [None]
  - COMA [None]
  - EPILEPSY [None]
  - FATIGUE [None]
  - HYPERTENSION [None]
  - PROSTATE CANCER [None]
  - SICK SINUS SYNDROME [None]
  - SOMNOLENCE [None]
  - SPINAL FUSION SURGERY [None]
